FAERS Safety Report 9556398 (Version 1)
Quarter: 2013Q3

REPORT INFORMATION
  Report Type: Spontaneous
  Country: GB (occurrence: GB)
  Receive Date: 20130926
  Receipt Date: 20130926
  Transmission Date: 20140515
  Serious: Yes (Other)
  Sender: FDA-Public Use
  Company Number: GB-TEVA-433275ISR

PATIENT
  Age: 20 Year
  Sex: Female
  Weight: 44.4 kg

DRUGS (2)
  1. TRIMETHOPRIM [Suspect]
     Indication: INFECTION
     Dosage: 400 MILLIGRAM DAILY;
     Dates: start: 20130806, end: 20130813
  2. SALAMOL [Concomitant]
     Indication: CHEST PAIN
     Dosage: 4 DOSAGE FORMS DAILY; ONE PUFF FOUR TIMES DAILY.?ON-GOING.
     Dates: start: 201307

REACTIONS (4)
  - Oral mucosal blistering [Not Recovered/Not Resolved]
  - Tongue blistering [Not Recovered/Not Resolved]
  - Oral pain [Not Recovered/Not Resolved]
  - Oropharyngeal blistering [Not Recovered/Not Resolved]
